FAERS Safety Report 7939209-9 (Version None)
Quarter: 2011Q4

REPORT INFORMATION
  Report Type: 
  Country: None (occurrence: None)
  Receive Date: 20111124
  Receipt Date: 20111110
  Transmission Date: 20120403
  Serious: Yes (Death)
  Sender: FDA-Public Use
  Company Number: JP-ROCHE-750808

PATIENT
  Sex: Female
  Weight: 59.4 kg

DRUGS (20)
  1. ACTEMRA [Suspect]
     Route: 041
     Dates: start: 20090420, end: 20090420
  2. FAMOTIDINE [Concomitant]
     Route: 048
  3. ACTEMRA [Suspect]
     Route: 041
     Dates: start: 20090223, end: 20090223
  4. PREDNISOLONE [Concomitant]
     Route: 048
  5. ACTEMRA [Suspect]
     Route: 041
     Dates: start: 20081229, end: 20081229
  6. ACTEMRA [Suspect]
     Route: 041
     Dates: start: 20090714, end: 20090714
  7. ACTEMRA [Suspect]
     Route: 041
     Dates: start: 20081105, end: 20081105
  8. ACTEMRA [Suspect]
     Route: 041
     Dates: start: 20090616, end: 20090616
  9. TACROLIMUS [Suspect]
     Indication: RHEUMATOID ARTHRITIS
     Route: 048
  10. TACROLIMUS [Suspect]
     Route: 048
     Dates: start: 20080925, end: 20081004
  11. ACTEMRA [Suspect]
     Route: 041
     Dates: start: 20090126, end: 20090126
  12. ACTEMRA [Suspect]
     Route: 041
     Dates: start: 20090323, end: 20090323
  13. ACTEMRA [Suspect]
     Route: 041
     Dates: start: 20090519, end: 20090519
  14. PREDNISOLONE [Concomitant]
     Route: 048
  15. LENDORMIN [Concomitant]
     Route: 048
  16. ACTEMRA [Suspect]
     Indication: RHEUMATOID ARTHRITIS
     Route: 041
     Dates: start: 20080809, end: 20080809
  17. ACTEMRA [Suspect]
     Route: 041
     Dates: start: 20081008, end: 20081008
  18. ACTEMRA [Suspect]
     Route: 041
     Dates: start: 20080909, end: 20080909
  19. ACTEMRA [Suspect]
     Route: 041
     Dates: start: 20081204, end: 20081204
  20. CELECOXIB [Concomitant]
     Route: 048

REACTIONS (5)
  - LUNG SQUAMOUS CELL CARCINOMA STAGE UNSPECIFIED [None]
  - METASTASES TO CENTRAL NERVOUS SYSTEM [None]
  - RHEUMATOID ARTHRITIS [None]
  - DRUG ERUPTION [None]
  - LYMPHANGIOSIS CARCINOMATOSA [None]
